FAERS Safety Report 7545390-6 (Version None)
Quarter: 2011Q2

REPORT INFORMATION
  Report Type: 
  Country: None (occurrence: None)
  Receive Date: 20110607
  Receipt Date: 20110601
  Transmission Date: 20111010
  Serious: Yes (Other)
  Sender: FDA-Public Use
  Company Number: 2011SP006399

PATIENT
  Age: 45 Year
  Sex: Female

DRUGS (1)
  1. SAPHRIS [Suspect]
     Indication: PRODUCT USED FOR UNKNOWN INDICATION
     Dosage: 5 MG, HS, SL
     Route: 060
     Dates: start: 20110201

REACTIONS (2)
  - CORNEAL OEDEMA [None]
  - VISION BLURRED [None]
